FAERS Safety Report 16756688 (Version 1)
Quarter: 2019Q3

REPORT INFORMATION
  Report Type: Spontaneous
  Country: GB (occurrence: GB)
  Receive Date: 20190829
  Receipt Date: 20190829
  Transmission Date: 20191005
  Serious: Yes (Disabling, Other)
  Sender: FDA-Public Use
  Company Number: GB-TEVA-2019-GB-1098488

PATIENT
  Age: 72 Year
  Sex: Male
  Weight: 81 kg

DRUGS (12)
  1. GAVISCON ADVANCE [Concomitant]
     Active Substance: POTASSIUM BICARBONATE\SODIUM ALGINATE
     Dosage: NIGHT
     Dates: start: 20190402, end: 20190502
  2. RANITIDINE. [Concomitant]
     Active Substance: RANITIDINE
     Indication: DYSPEPSIA
     Dates: start: 20190326
  3. FEBUXOSTAT. [Concomitant]
     Active Substance: FEBUXOSTAT
     Dates: start: 20170904
  4. FELODIPINE. [Concomitant]
     Active Substance: FELODIPINE
     Dates: start: 20170717
  5. COLCHICINE. [Concomitant]
     Active Substance: COLCHICINE
     Dates: start: 20181108
  6. BETAMETHASONE VALERATE. [Concomitant]
     Active Substance: BETAMETHASONE VALERATE
     Indication: RASH
     Dosage: APPLY ONCE OR TWICE DAILY SPARINGLY
     Dates: start: 20190121, end: 20190402
  7. APIXABAN [Concomitant]
     Active Substance: APIXABAN
     Dates: start: 20181203
  8. ATORVASTATIN [Concomitant]
     Active Substance: ATORVASTATIN
     Dates: start: 20170717
  9. LANSOPRAZOLE. [Suspect]
     Active Substance: LANSOPRAZOLE
     Indication: GASTROOESOPHAGEAL REFLUX DISEASE
     Dosage: MORNING
     Route: 065
     Dates: start: 20190314, end: 20190411
  10. ACIDEX [Concomitant]
     Active Substance: CALCIUM CARBONATE\SODIUM ALGINATE\SODIUM BICARBONATE
     Dosage: TEASPOONS.
     Dates: start: 20160616, end: 20190402
  11. FULTIUM-D3 [Concomitant]
     Active Substance: CHOLECALCIFEROL
     Dosage: AS DIRECTED
     Dates: start: 20170621
  12. ACIDEX ADVANCE HEARTBURN AND INDIGESTION RELIEF [Concomitant]
     Dosage: NIGHT
     Dates: start: 20190502

REACTIONS (3)
  - Pruritus generalised [Recovered/Resolved]
  - Lip swelling [Recovered/Resolved]
  - Vomiting [Recovered/Resolved]

NARRATIVE: CASE EVENT DATE: 20190514
